FAERS Safety Report 9254501 (Version 1)
Quarter: 2013Q2

REPORT INFORMATION
  Report Type: Spontaneous
  Country: US (occurrence: None)
  Receive Date: 20130422
  Receipt Date: 20130422
  Transmission Date: 20140414
  Serious: Yes (Other)
  Sender: FDA-Public Use
  Company Number: 1682321

PATIENT
  Age: 63 Year
  Sex: Female

DRUGS (6)
  1. IRINOTECAN HYDROCHLORIDE [Suspect]
     Indication: COLON CANCER METASTATIC
     Dosage: CYCLICAL?
  2. CALCIUM FOLINATE [Suspect]
     Indication: COLON CANCER METASTATIC
     Dosage: CYCLICAL?
  3. FLUOROURACIL [Suspect]
     Indication: COLON CANCER METASTATIC
     Dosage: CYCLICAL
  4. BEVACIZUMAB [Suspect]
     Indication: COLON CANCER METASTATIC
     Dosage: CYCLICAL
  5. CAPECITABINE [Suspect]
     Indication: COLON CANCER METASTATIC
     Dosage: CYCLICAL
  6. METFORMIN [Suspect]

REACTIONS (4)
  - Hypomagnesaemia [None]
  - Diarrhoea [None]
  - Malabsorption [None]
  - Condition aggravated [None]
